FAERS Safety Report 4706426-0 (Version None)
Quarter: 2005Q2

REPORT INFORMATION
  Report Type: 
  Country: None (occurrence: None)
  Receive Date: 20050113
  Receipt Date: 20050113
  Transmission Date: 20051028
  Serious: No
  Sender: FDA-Public Use
  Company Number: None

PATIENT
  Sex: Female

DRUGS (2)
  1. TICLOPIDINE HCL [Suspect]
     Indication: CORONARY ARTERY DISEASE
     Dosage: 250MG BID
  2. EZETEMIBE [Suspect]
     Indication: BLOOD CHOLESTEROL INCREASED
     Dosage: 10MG DAILY

REACTIONS (3)
  - DIZZINESS [None]
  - RASH [None]
  - RHINORRHOEA [None]
